FAERS Safety Report 10200981 (Version 4)
Quarter: 2015Q4

REPORT INFORMATION
  Report Type: Spontaneous
  Country: US (occurrence: US)
  Receive Date: 20140528
  Receipt Date: 20151002
  Transmission Date: 20160304
  Serious: Yes (Hospitalization, Other)
  Sender: FDA-Public Use
  Company Number: PHEH2014US010572

PATIENT
  Sex: Male

DRUGS (4)
  1. DIOVAN HCT [Concomitant]
     Active Substance: HYDROCHLOROTHIAZIDE\VALSARTAN
     Indication: PRODUCT USED FOR UNKNOWN INDICATION
     Dosage: 180 OF HYDROCHLOROTHIAZIDE AND 10 OF VALSARTAN, BID
     Route: 065
  2. GLUCOPHAGE [Concomitant]
     Active Substance: METFORMIN HYDROCHLORIDE
     Indication: PRODUCT USED FOR UNKNOWN INDICATION
     Dosage: 1000 OT, BID
     Route: 065
  3. TEKTURNA [Suspect]
     Active Substance: ALISKIREN HEMIFUMARATE
     Indication: HYPERTENSION
     Dosage: 150 MG, QD
     Route: 065
     Dates: start: 200704, end: 200802
  4. LOPRESSOR [Concomitant]
     Active Substance: METOPROLOL TARTRATE
     Indication: PRODUCT USED FOR UNKNOWN INDICATION
     Dosage: 100 OT, BID
     Route: 065

REACTIONS (46)
  - Obesity [Unknown]
  - Cough [Unknown]
  - Nausea [Recovering/Resolving]
  - Blood potassium increased [Unknown]
  - Anxiety [Unknown]
  - Diabetic neuropathy [Unknown]
  - Weight decreased [Unknown]
  - Gastritis [Unknown]
  - Incision site pain [Unknown]
  - Aortic valve sclerosis [Unknown]
  - Dizziness [Unknown]
  - Renal osteodystrophy [Unknown]
  - Polyneuropathy [Unknown]
  - Proteinuria [Unknown]
  - Oropharyngeal pain [Unknown]
  - Hypercholesterolaemia [Unknown]
  - Anaemia [Unknown]
  - Syncope [Unknown]
  - Cardiac failure congestive [Unknown]
  - Benign neoplasm of adrenal gland [Unknown]
  - Renal cyst [Unknown]
  - Hypotension [Unknown]
  - Terminal state [Unknown]
  - Complications of transplanted kidney [Unknown]
  - Haematuria [Recovering/Resolving]
  - Injury [Unknown]
  - Tremor [Unknown]
  - Thyroid neoplasm [Unknown]
  - Epigastric discomfort [Unknown]
  - Abdominal pain [Unknown]
  - Peripheral swelling [Unknown]
  - Pain [Unknown]
  - Anhedonia [Unknown]
  - Neck pain [Unknown]
  - Hyperparathyroidism secondary [Unknown]
  - Cataract [Unknown]
  - Headache [Unknown]
  - Dyspepsia [Unknown]
  - Cerebrovascular accident [Unknown]
  - Chronic kidney disease [Unknown]
  - Hypertension [Unknown]
  - Renal impairment [Unknown]
  - Disability [Unknown]
  - Type 2 diabetes mellitus [Unknown]
  - Gravitational oedema [Unknown]
  - Chest pain [Unknown]

NARRATIVE: CASE EVENT DATE: 2008
